FAERS Safety Report 7617144-3 (Version None)
Quarter: 2011Q3

REPORT INFORMATION
  Report Type: 
  Country: None (occurrence: None)
  Receive Date: 20110718
  Receipt Date: 20110707
  Transmission Date: 20111222
  Serious: Yes (Other)
  Sender: FDA-Public Use
  Company Number: US-BAYER-2011-017887

PATIENT
  Sex: Female

DRUGS (1)
  1. MIRENA [Suspect]

REACTIONS (5)
  - DEVICE DISLOCATION [None]
  - DEVICE EXPULSION [None]
  - DYSURIA [None]
  - PREGNANCY WITH CONTRACEPTIVE DEVICE [None]
  - ABDOMINAL PAIN [None]
